FAERS Safety Report 5191241-7 (Version None)
Quarter: 2006Q4

REPORT INFORMATION
  Report Type: 
  Country: None (occurrence: None)
  Receive Date: 20061226
  Receipt Date: 20061220
  Transmission Date: 20070319
  Serious: Yes (Death)
  Sender: FDA-Public Use
  Company Number: HR-NOVOPROD-259434

PATIENT
  Sex: Male
  Weight: 110 kg

DRUGS (2)
  1. NOVOSEVEN [Suspect]
     Indication: CEREBRAL HAEMORRHAGE
     Dosage: 7.2 MG, UNK
     Dates: start: 20061101, end: 20061101
  2. ANTIHYPERTENSIVES [Concomitant]

REACTIONS (1)
  - RESPIRATORY FAILURE [None]
